FAERS Safety Report 10249832 (Version 1)
Quarter: 2014Q2

REPORT INFORMATION
  Report Type: Spontaneous
  Country: US (occurrence: None)
  Receive Date: 20140618
  Receipt Date: 20140618
  Transmission Date: 20141212
  Serious: Yes (Disabling)
  Sender: FDA-Public Use
  Company Number: None

PATIENT
  Age: 50 Year
  Sex: Female

DRUGS (1)
  1. FOSAMAX [Suspect]
     Indication: OSTEOPENIA
     Dosage: ONE?Q SUNDAY?TAKEN BY MOUTH
     Route: 048
     Dates: start: 20130106, end: 20130505

REACTIONS (10)
  - Activities of daily living impaired [None]
  - Arthralgia [None]
  - Joint swelling [None]
  - Musculoskeletal pain [None]
  - Joint warmth [None]
  - Immobile [None]
  - Abasia [None]
  - Insomnia [None]
  - Crying [None]
  - Constipation [None]
